FAERS Safety Report 16337084 (Version 2)
Quarter: 2019Q2

REPORT INFORMATION
  Report Type: Spontaneous
  Country: US (occurrence: US)
  Receive Date: 20190521
  Receipt Date: 20190620
  Transmission Date: 20190711
  Serious: No
  Sender: FDA-Public Use
  Company Number: US-BAYER-2019-099477

PATIENT
  Age: 43 Year
  Sex: Female
  Weight: 65.76 kg

DRUGS (2)
  1. GADAVIST [Suspect]
     Active Substance: GADOBUTROL
     Indication: NUCLEAR MAGNETIC RESONANCE IMAGING
     Dosage: 7.5 ML, ONCE
     Route: 042
     Dates: start: 20190520, end: 20190520
  2. GADAVIST [Suspect]
     Active Substance: GADOBUTROL
     Indication: BREAST CANCER

REACTIONS (2)
  - Pruritus [Recovered/Resolved]
  - Urticaria [Recovered/Resolved]

NARRATIVE: CASE EVENT DATE: 20190520
